FAERS Safety Report 24444147 (Version 1)
Quarter: 2024Q4

REPORT INFORMATION
  Report Type: Spontaneous
  Country: US (occurrence: None)
  Receive Date: 20241015
  Receipt Date: 20241015
  Transmission Date: 20250115
  Serious: Yes (Hospitalization)
  Sender: Public
  Company Number: None

PATIENT
  Age: 79 Year
  Sex: Male

DRUGS (4)
  1. CEFAZOLIN SODIUM PENTAHYDRATE [Suspect]
     Active Substance: CEFAZOLIN SODIUM PENTAHYDRATE
     Indication: Infection
     Dates: start: 20240710, end: 20240710
  2. METOPROLOL TARTRATE [Suspect]
     Active Substance: METOPROLOL TARTRATE
  3. ESMOLOL [Suspect]
     Active Substance: ESMOLOL HYDROCHLORIDE
  4. FENTANYL [Suspect]
     Active Substance: FENTANYL

REACTIONS (2)
  - Tachycardia [None]
  - Atrial fibrillation [None]

NARRATIVE: CASE EVENT DATE: 20240710
